FAERS Safety Report 9432436 (Version 2)
Quarter: 2013Q3

REPORT INFORMATION
  Report Type: Spontaneous
  Country: BH (occurrence: BH)
  Receive Date: 20130731
  Receipt Date: 20130819
  Transmission Date: 20140515
  Serious: Yes (Other)
  Sender: FDA-Public Use
  Company Number: BH-PFIZER INC-2013213394

PATIENT
  Sex: Female

DRUGS (2)
  1. LYRICA [Suspect]
     Dosage: 75 MG, ONE TABLET EACH DAY FOR 3 WEEKS
     Dates: start: 20130612
  2. LYRICA [Suspect]
     Dosage: 75 MG, 2X/DAY
     Dates: start: 20130703, end: 20130716

REACTIONS (12)
  - Pruritus generalised [Not Recovered/Not Resolved]
  - Psoriasis [Unknown]
  - Rosacea [Unknown]
  - Miliaria [Not Recovered/Not Resolved]
  - Impaired work ability [Unknown]
  - Acne [Recovered/Resolved]
  - Activities of daily living impaired [Unknown]
  - Mental impairment [Unknown]
  - Skin sensitisation [Unknown]
  - Pain [Unknown]
  - Insomnia [Unknown]
  - Burning sensation [Unknown]
